FAERS Safety Report 4765737-3 (Version None)
Quarter: 2005Q3

REPORT INFORMATION
  Report Type: 
  Country: None (occurrence: None)
  Receive Date: 20050906
  Receipt Date: 20050824
  Transmission Date: 20060218
  Serious: Yes (Other)
  Sender: FDA-Public Use
  Company Number: 200512676GDS

PATIENT
  Age: 75 Year
  Sex: Male

DRUGS (7)
  1. PRANDASE (ACARBOSE) [Suspect]
     Indication: DIABETES MELLITUS
  2. METFORMIN [Suspect]
     Indication: DIABETES MELLITUS
  3. HUMULIN N [Suspect]
     Indication: DIABETES MELLITUS
  4. ACTOS [Concomitant]
  5. AMARYL [Concomitant]
  6. DIABETA [Concomitant]
  7. LOPRESSOR [Concomitant]

REACTIONS (7)
  - ABDOMINAL DISTENSION [None]
  - BLOOD PRESSURE DECREASED [None]
  - CONFUSIONAL STATE [None]
  - DIZZINESS [None]
  - FLATULENCE [None]
  - HYPERGLYCAEMIA [None]
  - HYPOGLYCAEMIA [None]
